FAERS Safety Report 6672110-X (Version None)
Quarter: 2010Q2

REPORT INFORMATION
  Report Type: 
  Country: None (occurrence: None)
  Receive Date: 20100407
  Receipt Date: 20100407
  Transmission Date: 20101027
  Serious: Yes (Other)
  Sender: FDA-Public Use
  Company Number: None

PATIENT
  Age: 35 Year
  Sex: Female
  Weight: 56.6996 kg

DRUGS (1)
  1. ACETAZOLAMINE 500MG SUSTAINED RELEASE CAP [Suspect]
     Indication: MOUNTAIN SICKNESS ACUTE
     Dosage: ONE TABLET TWICE A DAY
     Dates: start: 20100324, end: 20100325

REACTIONS (5)
  - DRY MOUTH [None]
  - HEADACHE [None]
  - POLYDIPSIA [None]
  - PRODUCT QUALITY ISSUE [None]
  - VISION BLURRED [None]
